FAERS Safety Report 8766248 (Version 2)
Quarter: 2013Q1

REPORT INFORMATION
  Report Type: Report from Study
  Country: DE (occurrence: DE)
  Receive Date: 20120904
  Receipt Date: 20130222
  Transmission Date: 20140127
  Serious: Yes (Hospitalization)
  Sender: FDA-Public Use
  Company Number: DE-ROCHE-1111601

PATIENT
  Age: 17 Year
  Sex: Male
  Weight: 110 kg

DRUGS (2)
  1. TOCILIZUMAB [Suspect]
     Indication: RHEUMATOID ARTHRITIS
     Dosage: LAST DOSE PRIOR TO SAE: 10 AUG 2011
     Route: 042
     Dates: start: 20110517
  2. RITUXIMAB [Suspect]
     Indication: RHEUMATOID ARTHRITIS
     Dosage: LAST DOSE PRIOR TO SAE: 04 OCT 2011
     Route: 042
     Dates: start: 20110920

REACTIONS (1)
  - Myocardial infarction [Recovered/Resolved]
